FAERS Safety Report 23966030 (Version 1)
Quarter: 2024Q2

REPORT INFORMATION
  Report Type: Spontaneous
  Country: US (occurrence: None)
  Receive Date: 20240611
  Receipt Date: 20240611
  Transmission Date: 20240716
  Serious: Yes (Other)
  Sender: FDA-Public Use
  Company Number: None

PATIENT
  Age: 73 Year
  Sex: Female

DRUGS (11)
  1. REPATHA [Suspect]
     Active Substance: EVOLOCUMAB
     Indication: Product used for unknown indication
     Dosage: FREQUENCY : MONTHLY;?
     Route: 058
     Dates: start: 20230922, end: 20240611
  2. BIOTIN [Concomitant]
  3. BUPROPION [Concomitant]
     Active Substance: BUPROPION
  4. BYSTOLIC [Concomitant]
  5. EZETIMIBE [Concomitant]
     Active Substance: EZETIMIBE
  6. ISOSORBIDE MONONITRATE [Concomitant]
     Active Substance: ISOSORBIDE MONONITRATE
  7. LEVOCETIRIZINE [Concomitant]
  8. METFORMIN [Concomitant]
  9. VIIBRYD [Concomitant]
     Active Substance: VILAZODONE HYDROCHLORIDE
  10. PANTOPRAZOLE [Concomitant]
  11. ROSUVASTATIN [Concomitant]

REACTIONS (3)
  - Hypersensitivity [None]
  - Infusion site reaction [None]
  - Therapy cessation [None]

NARRATIVE: CASE EVENT DATE: 20240320
